FAERS Safety Report 11613401 (Version 1)
Quarter: 2015Q4

REPORT INFORMATION
  Report Type: Spontaneous
  Country: US (occurrence: US)
  Receive Date: 20151008
  Receipt Date: 20151008
  Transmission Date: 20160304
  Serious: Yes (Death)
  Sender: FDA-Public Use
  Company Number: US-ASTRAZENECA-2015SE95035

PATIENT
  Sex: Male

DRUGS (1)
  1. NEXIUM [Suspect]
     Active Substance: ESOMEPRAZOLE MAGNESIUM
     Indication: DYSPEPSIA
     Route: 048

REACTIONS (4)
  - Oesophageal carcinoma [Fatal]
  - Off label use [Unknown]
  - Product use issue [Unknown]
  - Barrett^s oesophagus [Unknown]

NARRATIVE: CASE EVENT DATE: 2015
